FAERS Safety Report 20791916 (Version 1)
Quarter: 2022Q2

REPORT INFORMATION
  Report Type: Spontaneous
  Country: US (occurrence: None)
  Receive Date: 20220505
  Receipt Date: 20220505
  Transmission Date: 20220721
  Serious: No
  Sender: FDA-Public Use
  Company Number: None

PATIENT
  Age: 59 Year
  Sex: Female

DRUGS (1)
  1. LENALIDOMIDE [Suspect]
     Active Substance: LENALIDOMIDE
     Indication: Myelodysplastic syndrome
     Dosage: 10 MG ONCE DAILY ORAL?
     Route: 048
     Dates: start: 20220401

REACTIONS (2)
  - Rash [None]
  - Therapy interrupted [None]

NARRATIVE: CASE EVENT DATE: 20220411
